FAERS Safety Report 10349476 (Version 1)
Quarter: 2014Q3

REPORT INFORMATION
  Report Type: Spontaneous
  Country: US (occurrence: US)
  Receive Date: 20140730
  Receipt Date: 20140730
  Transmission Date: 20150326
  Serious: Yes (Hospitalization, Other)
  Sender: FDA-Public Use
  Company Number: US-AMGEN-USASP2014055542

PATIENT
  Age: 29 Year
  Sex: Female

DRUGS (1)
  1. NEUPOGEN [Suspect]
     Active Substance: FILGRASTIM
     Indication: NEUTROPENIA
     Dosage: UNK UNK, WEEKLY
     Route: 065

REACTIONS (8)
  - Maternal condition affecting foetus [Unknown]
  - Impaired work ability [Unknown]
  - Hospitalisation [Unknown]
  - Malaise [Unknown]
  - Pyrexia [Unknown]
  - Chills [Unknown]
  - Bone pain [Unknown]
  - Foetal distress syndrome [Unknown]

NARRATIVE: CASE EVENT DATE: 201404
